FAERS Safety Report 18282649 (Version 2)
Quarter: 2020Q4

REPORT INFORMATION
  Report Type: Spontaneous
  Country: US (occurrence: US)
  Receive Date: 20200918
  Receipt Date: 20201125
  Transmission Date: 20210113
  Serious: Yes (Death, Other)
  Sender: FDA-Public Use
  Company Number: US-BRISTOL-MYERS SQUIBB COMPANY-BMS-2020-076239

PATIENT
  Sex: Male

DRUGS (2)
  1. OPDIVO [Suspect]
     Active Substance: NIVOLUMAB
     Indication: OESOPHAGEAL CARCINOMA
     Dosage: 70 MILLIGRAM, Q3WK
     Route: 042
     Dates: start: 20200804, end: 20200825
  2. YERVOY [Suspect]
     Active Substance: IPILIMUMAB
     Indication: OESOPHAGEAL CARCINOMA
     Dosage: 210 MILLIGRAM, Q3WK
     Route: 042

REACTIONS (2)
  - Death [Fatal]
  - Intentional product use issue [Unknown]
